FAERS Safety Report 9715661 (Version 1)
Quarter: 2013Q4

REPORT INFORMATION
  Report Type: Spontaneous
  Country: US (occurrence: US)
  Receive Date: 20131127
  Receipt Date: 20131127
  Transmission Date: 20140711
  Serious: Yes (Other)
  Sender: FDA-Public Use
  Company Number: US-SHIRE-ALL1-2013-08155

PATIENT
  Age: 23 Year
  Sex: Female
  Weight: 70.3 kg

DRUGS (2)
  1. VYVANSE [Suspect]
     Indication: ATTENTION DEFICIT/HYPERACTIVITY DISORDER
     Dosage: 30 MG, 1X/DAY:QD
     Route: 048
     Dates: start: 20131019, end: 20131101
  2. ASPIRIN [Concomitant]
     Indication: DYSMENORRHOEA
     Dosage: UNK, AS REQ^D
     Route: 048

REACTIONS (3)
  - Dystonia [Not Recovered/Not Resolved]
  - Dyskinesia [Not Recovered/Not Resolved]
  - Weight increased [Unknown]
